FAERS Safety Report 10463352 (Version 3)
Quarter: 2015Q2

REPORT INFORMATION
  Report Type: Spontaneous
  Country: US (occurrence: US)
  Receive Date: 20140919
  Receipt Date: 20150513
  Transmission Date: 20150821
  Serious: Yes (Other)
  Sender: FDA-Public Use
  Company Number: US-AMGEN-USASP2014070905

PATIENT
  Age: 73 Year
  Sex: Female
  Weight: 58.5 kg

DRUGS (7)
  1. HYDROCHLOROTHIAZIDE. [Concomitant]
     Active Substance: HYDROCHLOROTHIAZIDE
     Indication: OEDEMA
     Dosage: 25 MG, BID (AS NECESSARY FOR EDEMA)
     Route: 048
     Dates: start: 20140910
  2. VALIUM [Concomitant]
     Active Substance: DIAZEPAM
     Dosage: 5 MG, BID
     Route: 048
     Dates: start: 20140910
  3. SIMVASTATIN. [Concomitant]
     Active Substance: SIMVASTATIN
     Dosage: 20 MG, QD
     Route: 048
     Dates: start: 20140910
  4. PROLIA [Suspect]
     Active Substance: DENOSUMAB
     Indication: OSTEOPOROSIS POSTMENOPAUSAL
     Dosage: 60 MG, Q6MO
     Route: 058
     Dates: start: 20120828
  5. AZOR                               /00595201/ [Concomitant]
     Active Substance: ALPRAZOLAM
     Dosage: 10MG-40MG, QD
     Route: 048
     Dates: start: 20140910
  6. ETODOLAC. [Concomitant]
     Active Substance: ETODOLAC
     Dosage: 500 MG, BID
     Route: 048
     Dates: start: 20140910
  7. MIRAPEX [Concomitant]
     Active Substance: PRAMIPEXOLE DIHYDROCHLORIDE
     Dosage: 0.25 MG(0.5 TABLET), QD
     Route: 048
     Dates: start: 20140910

REACTIONS (26)
  - Activities of daily living impaired [Unknown]
  - Impaired healing [Unknown]
  - Nausea [Recovering/Resolving]
  - Vomiting [Unknown]
  - Knee arthroplasty [Unknown]
  - Malaise [Unknown]
  - Back pain [Unknown]
  - Vitamin B12 deficiency [Unknown]
  - Angina pectoris [Unknown]
  - Weight decreased [Unknown]
  - Mouth ulceration [Unknown]
  - Haematochezia [Unknown]
  - Arthralgia [Unknown]
  - Gingival injury [Unknown]
  - Chest pain [Unknown]
  - Fatigue [Unknown]
  - Rotator cuff syndrome [Unknown]
  - Osteonecrosis of jaw [Unknown]
  - Diarrhoea [Not Recovered/Not Resolved]
  - Haemorrhoids [Unknown]
  - Swelling [Unknown]
  - Anxiety [Unknown]
  - Gingival disorder [Unknown]
  - Asthenia [Unknown]
  - Decreased appetite [Unknown]
  - Essential hypertension [Unknown]

NARRATIVE: CASE EVENT DATE: 2012
